FAERS Safety Report 7243709-7 (Version None)
Quarter: 2011Q1

REPORT INFORMATION
  Report Type: 
  Country: None (occurrence: None)
  Receive Date: 20110125
  Receipt Date: 20110121
  Transmission Date: 20110831
  Serious: No
  Sender: FDA-Public Use
  Company Number: US-PFIZER INC-2011015735

PATIENT
  Sex: Female
  Weight: 70.295 kg

DRUGS (1)
  1. ADVIL COLD AND SINUS [Suspect]
     Indication: SINUS DISORDER
     Dosage: UNK
     Route: 048
     Dates: start: 20110117

REACTIONS (1)
  - DRUG INEFFECTIVE [None]
